FAERS Safety Report 10257237 (Version 2)
Quarter: 2014Q2

REPORT INFORMATION
  Report Type: Spontaneous
  Country: US (occurrence: US)
  Receive Date: 20140625
  Receipt Date: 20140625
  Transmission Date: 20141212
  Serious: No
  Sender: FDA-Public Use
  Company Number: US-AMGEN-USASP2014043721

PATIENT
  Age: 54 Year
  Sex: Female

DRUGS (5)
  1. ENBREL [Suspect]
     Indication: ANKYLOSING SPONDYLITIS
     Dosage: 50 MG, QWK
     Route: 058
     Dates: start: 20140518
  2. RIFAMPICIN [Concomitant]
     Indication: TUBERCULIN TEST
     Dosage: UNK UNK, QD
     Route: 048
  3. LEVOTHYROXINE [Concomitant]
     Indication: HYPOTHYROIDISM
     Dosage: 100 MUG, QD
     Route: 048
  4. FUROSEMIDE [Concomitant]
     Dosage: 25 MG, QD
     Route: 048
  5. CYANOCOBALAMIN [Concomitant]
     Dosage: UNK UNK, QD
     Route: 048

REACTIONS (5)
  - Injection site swelling [Recovering/Resolving]
  - Injection site erythema [Recovering/Resolving]
  - Injection site rash [Not Recovered/Not Resolved]
  - Injection site pain [Not Recovered/Not Resolved]
  - Injection site bruising [Recovering/Resolving]
